FAERS Safety Report 9757632 (Version 2)
Quarter: 2014Q1

REPORT INFORMATION
  Report Type: Spontaneous
  Country: US (occurrence: US)
  Receive Date: 20131216
  Receipt Date: 20140109
  Transmission Date: 20141002
  Serious: No
  Sender: FDA-Public Use
  Company Number: US-BIOGENIDEC-2013BI118741

PATIENT
  Age: 51 Year
  Sex: Female

DRUGS (6)
  1. TYSABRI [Suspect]
     Indication: MULTIPLE SCLEROSIS
     Route: 042
     Dates: start: 20080404, end: 20090811
  2. TYSABRI [Suspect]
     Indication: MULTIPLE SCLEROSIS
     Route: 042
     Dates: start: 20100414, end: 20111129
  3. TYSABRI [Suspect]
     Indication: MULTIPLE SCLEROSIS
     Route: 042
     Dates: start: 20130819, end: 20131023
  4. BACLOFEN [Concomitant]
     Dates: end: 20131203
  5. BACLOFEN [Concomitant]
  6. REGENIFREE [Concomitant]
     Dates: end: 20131203

REACTIONS (1)
  - Transaminases increased [Not Recovered/Not Resolved]
